FAERS Safety Report 20976333 (Version 1)
Quarter: 2022Q2

REPORT INFORMATION
  Report Type: Spontaneous
  Country: DE (occurrence: None)
  Receive Date: 20220617
  Receipt Date: 20220617
  Transmission Date: 20220721
  Serious: Yes (Life-Threatening, Hospitalization, Other)
  Sender: FDA-Public Use
  Company Number: 2022A177312

PATIENT
  Age: 54 Year
  Sex: Male
  Weight: 114 kg

DRUGS (2)
  1. DAPAGLIFLOZIN [Suspect]
     Active Substance: DAPAGLIFLOZIN
     Indication: Type 2 diabetes mellitus
     Dosage: 5.0MG UNKNOWN
     Route: 048
     Dates: start: 20220427, end: 20220501
  2. METFORMIN [Concomitant]
     Active Substance: METFORMIN HYDROCHLORIDE
     Dosage: 2 X 850 MG
     Route: 048
     Dates: start: 20220427, end: 20220501

REACTIONS (14)
  - Microalbuminuria [Unknown]
  - Hypophosphataemia [Unknown]
  - Hypothyroidism [Unknown]
  - Hepatic steatosis [Unknown]
  - Hypertension [Unknown]
  - Pancreatic steatosis [Unknown]
  - Hypovolaemia [Unknown]
  - Ketoacidosis [Recovered/Resolved]
  - Decreased appetite [Unknown]
  - Cough [Unknown]
  - Dyspnoea [Unknown]
  - Musculoskeletal chest pain [Unknown]
  - Tachypnoea [Unknown]
  - Off label use [Unknown]

NARRATIVE: CASE EVENT DATE: 20220503
